FAERS Safety Report 10626400 (Version 3)
Quarter: 2016Q1

REPORT INFORMATION
  Report Type: Spontaneous
  Country: IE (occurrence: IE)
  Receive Date: 20141204
  Receipt Date: 20160311
  Transmission Date: 20160525
  Serious: Yes (Other)
  Sender: FDA-Public Use
  Company Number: IE-BRISTOL-MYERS SQUIBB COMPANY-21654967

PATIENT
  Age: 44 Year
  Sex: Male

DRUGS (2)
  1. BRIPLATIN [Suspect]
     Active Substance: CISPLATIN
     Indication: SEMINOMA
     Dosage: 400 MG/M2, UNK
     Route: 065
  2. VEPESID [Suspect]
     Active Substance: ETOPOSIDE
     Indication: SEMINOMA
     Route: 065

REACTIONS (4)
  - Lhermitte^s sign [Unknown]
  - Neuropathy peripheral [Unknown]
  - Product use issue [Unknown]
  - Thrombosis [Unknown]
